FAERS Safety Report 10037973 (Version 3)
Quarter: 2014Q2

REPORT INFORMATION
  Report Type: Spontaneous
  Country: JP (occurrence: JP)
  Receive Date: 20140326
  Receipt Date: 20140624
  Transmission Date: 20141212
  Serious: Yes (Hospitalization)
  Sender: FDA-Public Use
  Company Number: JP-SA-2014SA031700

PATIENT
  Age: 1 Year
  Sex: Female
  Weight: 5.37 kg

DRUGS (3)
  1. CLAFORAN [Suspect]
     Indication: PNEUMONIA
     Route: 042
     Dates: start: 20140304, end: 20140306
  2. MUCODYNE [Suspect]
     Indication: PRODUCT USED FOR UNKNOWN INDICATION
     Route: 048
     Dates: start: 20140303, end: 20140306
  3. PALIVIZUMAB [Suspect]
     Indication: PRODUCT USED FOR UNKNOWN INDICATION
     Route: 030
     Dates: start: 20140222

REACTIONS (1)
  - Thrombocytopenia [Recovered/Resolved]
